FAERS Safety Report 9129765 (Version 1)
Quarter: 2013Q1

REPORT INFORMATION
  Report Type: Spontaneous
  Country: CN (occurrence: CN)
  Receive Date: 20130228
  Receipt Date: 20130228
  Transmission Date: 20140127
  Serious: Yes (Hospitalization)
  Sender: FDA-Public Use
  Company Number: CN-ASTRAZENECA-2013SE11157

PATIENT
  Age: 57 Year
  Sex: Male

DRUGS (3)
  1. BETALOC ZOK [Suspect]
     Indication: CHEST DISCOMFORT
     Route: 048
  2. BETALOC ZOK [Suspect]
     Indication: PALPITATIONS
     Route: 048
  3. QUCIK ACTING HEART RELEIVER [Concomitant]
     Indication: CARDIAC DISORDER
     Route: 048

REACTIONS (1)
  - Shock [Recovered/Resolved]
